FAERS Safety Report 7956284-6 (Version None)
Quarter: 2011Q4

REPORT INFORMATION
  Report Type: 
  Country: None (occurrence: None)
  Receive Date: 20111205
  Receipt Date: 20111125
  Transmission Date: 20120403
  Serious: Yes (Hospitalization)
  Sender: FDA-Public Use
  Company Number: FR-JNJFOC-20111112338

PATIENT
  Age: 37 Year
  Sex: Female

DRUGS (5)
  1. LITHIUM CARBONATE [Suspect]
     Indication: BIPOLAR DISORDER
     Route: 048
  2. TPN [Suspect]
     Indication: PRODUCT USED FOR UNKNOWN INDICATION
     Route: 048
     Dates: start: 20110628, end: 20110630
  3. RISPERDAL [Suspect]
     Indication: BIPOLAR DISORDER
     Route: 048
  4. GREEN TEA [Suspect]
     Indication: PRODUCT USED FOR UNKNOWN INDICATION
     Route: 048
     Dates: start: 20110628, end: 20110630
  5. EFFEXOR [Suspect]
     Indication: BIPOLAR DISORDER
     Route: 048

REACTIONS (9)
  - COMA [None]
  - CONVULSION [None]
  - BLOOD PRESSURE DECREASED [None]
  - ATRIOVENTRICULAR BLOCK [None]
  - BRADYCARDIA [None]
  - NODAL RHYTHM [None]
  - LEUKOCYTOSIS [None]
  - ATRIOVENTRICULAR BLOCK COMPLETE [None]
  - NORMOCHROMIC NORMOCYTIC ANAEMIA [None]
